FAERS Safety Report 16469286 (Version 1)
Quarter: 2019Q2

REPORT INFORMATION
  Report Type: Spontaneous
  Country: US (occurrence: US)
  Receive Date: 20190624
  Receipt Date: 20190624
  Transmission Date: 20190711
  Serious: No
  Sender: FDA-Public Use
  Company Number: US-SA-2019SA161591

PATIENT
  Age: 16 Year
  Sex: Male
  Weight: 93 kg

DRUGS (7)
  1. PROTOPIC [Concomitant]
     Active Substance: TACROLIMUS
  2. SYNALAR [Concomitant]
     Active Substance: FLUOCINOLONE ACETONIDE
  3. DUPIXENT [Suspect]
     Active Substance: DUPILUMAB
     Dosage: 300 MG, QOW
     Route: 058
  4. KETOCONAZOLE. [Concomitant]
     Active Substance: KETOCONAZOLE
  5. DUPIXENT [Suspect]
     Active Substance: DUPILUMAB
     Indication: DERMATITIS ATOPIC
     Dosage: 600 MG, 1X (2 SYRINGES)
     Route: 058
  6. TACROLIMUS. [Concomitant]
     Active Substance: TACROLIMUS
  7. TRIAMCINOLONE ACETONIDE. [Concomitant]
     Active Substance: TRIAMCINOLONE ACETONIDE

REACTIONS (3)
  - Nasopharyngitis [Unknown]
  - Rhinorrhoea [Unknown]
  - Nasal congestion [Unknown]

NARRATIVE: CASE EVENT DATE: 20190605
